FAERS Safety Report 6986386-2 (Version None)
Quarter: 2010Q3

REPORT INFORMATION
  Report Type: 
  Country: None (occurrence: None)
  Receive Date: 20100915
  Receipt Date: 20090818
  Transmission Date: 20110219
  Serious: No
  Sender: FDA-Public Use
  Company Number: US-WYE-H09981709

PATIENT
  Sex: Male
  Weight: 68.1 kg

DRUGS (11)
  1. PRISTIQ [Suspect]
     Indication: DEPRESSION
     Route: 048
     Dates: start: 20090626, end: 20090629
  2. LIPITOR [Concomitant]
  3. NEXIUM [Concomitant]
  4. HYDRALAZINE HCL [Concomitant]
  5. RESTORIL [Concomitant]
  6. FERROUS SULFATE [Concomitant]
  7. PROSCAR [Concomitant]
  8. CENTRUM SILVER [Concomitant]
  9. FISH OIL, HYDROGENATED [Concomitant]
  10. ACETYLSALICYLIC ACID [Concomitant]
  11. VERAPAMIL [Concomitant]

REACTIONS (5)
  - ASTHENIA [None]
  - DIZZINESS [None]
  - DRY MOUTH [None]
  - HEADACHE [None]
  - INSOMNIA [None]
